FAERS Safety Report 10152622 (Version 1)
Quarter: 2014Q2

REPORT INFORMATION
  Report Type: Spontaneous
  Country: US (occurrence: None)
  Receive Date: 20140502
  Receipt Date: 20140502
  Transmission Date: 20141212
  Serious: No
  Sender: FDA-Public Use
  Company Number: None

PATIENT
  Age: 31 Year
  Sex: Female
  Weight: 127.4 kg

DRUGS (1)
  1. INTRON-A (INTERFERON ALFA-2B) [Suspect]

REACTIONS (3)
  - Nausea [None]
  - Constipation [None]
  - Gastritis [None]
